FAERS Safety Report 11320268 (Version 2)
Quarter: 2024Q2

REPORT INFORMATION
  Report Type: Report from Study
  Country: US (occurrence: US)
  Receive Date: 20150729
  Receipt Date: 20240626
  Transmission Date: 20240716
  Serious: No
  Sender: FDA-Public Use
  Company Number: US-JNJFOC-20150716648

PATIENT
  Age: 64 Year
  Sex: Female

DRUGS (3)
  1. STELARA [Suspect]
     Active Substance: USTEKINUMAB
     Indication: Psoriasis
     Route: 058
     Dates: start: 20111223, end: 20131004
  2. REMICADE [Suspect]
     Active Substance: INFLIXIMAB
     Indication: Psoriasis
     Route: 058
     Dates: start: 20110112, end: 20111005
  3. REMICADE [Suspect]
     Active Substance: INFLIXIMAB
     Route: 058
     Dates: start: 20070701, end: 20070701

REACTIONS (3)
  - Squamous cell carcinoma [Unknown]
  - Squamous cell carcinoma [Unknown]
  - Basal cell carcinoma [Unknown]

NARRATIVE: CASE EVENT DATE: 20120716
